FAERS Safety Report 5720922-9 (Version None)
Quarter: 2008Q2

REPORT INFORMATION
  Report Type: 
  Country: None (occurrence: None)
  Receive Date: 20080425
  Receipt Date: 20080425
  Transmission Date: 20081010
  Serious: Yes (Life-Threatening)
  Sender: FDA-Public Use
  Company Number: None

PATIENT
  Age: 77 Year
  Sex: Male
  Weight: 77 kg

DRUGS (1)
  1. COUMADIN [Suspect]
     Indication: PROSTHESIS USER
     Dosage: 5MG TABLET EVERYDAY PO
     Route: 048

REACTIONS (6)
  - COAGULOPATHY [None]
  - CONFUSIONAL STATE [None]
  - CONTUSION [None]
  - HYPERTENSION [None]
  - NAUSEA [None]
  - VOMITING [None]
